FAERS Safety Report 22172695 (Version 2)
Quarter: 2023Q2

REPORT INFORMATION
  Report Type: Spontaneous
  Country: TR (occurrence: TR)
  Receive Date: 20230404
  Receipt Date: 20230425
  Transmission Date: 20230722
  Serious: Yes (Other)
  Sender: FDA-Public Use
  Company Number: TR-China IPSEN SC-2023-07733

PATIENT
  Age: 35 Year
  Sex: Female
  Weight: 77 kg

DRUGS (1)
  1. DYSPORT [Suspect]
     Active Substance: ABOBOTULINUMTOXINA
     Indication: Weight decreased
     Route: 065
     Dates: start: 20230220, end: 20230220

REACTIONS (6)
  - Diplopia [Unknown]
  - Fatigue [Unknown]
  - Off label use [Unknown]
  - Muscular weakness [Unknown]
  - Vision blurred [Unknown]
  - Urinary incontinence [Unknown]
